FAERS Safety Report 7950719 (Version 6)
Quarter: 2013Q1

REPORT INFORMATION
  Report Type: Spontaneous
  Country: GB (occurrence: None)
  Receive Date: 20110429
  Receipt Date: 20130122
  Transmission Date: 20140127
  Serious: Yes (Life-Threatening)
  Sender: FDA-Public Use
  Company Number: 2011084018

PATIENT
  Age: 65 Year
  Sex: Female

DRUGS (7)
  1. DALTEPARIN SODIUM [Suspect]
     Indication: LUNG NEOPLASM MALIGNANT
     Route: 058
     Dates: start: 20110406, end: 20110415
  2. CISPLATIN [Suspect]
     Indication: LUNG NEOPLASM MALIGNANT
     Route: 042
     Dates: start: 20110405, end: 20110405
  3. PEMETREXED [Suspect]
     Indication: LUNG NEOPLASM MALIGNANT
     Route: 042
     Dates: start: 20110405, end: 20110405
  4. CIPROFLOXACIN [Concomitant]
  5. FOLIC ACID [Concomitant]
  6. DOMPERIDONE (DOMEPERIDONE) [Concomitant]
  7. LANSOPRAZOLE (LANSOPRAZOLE) [Concomitant]

REACTIONS (8)
  - Hypotension [None]
  - Bone marrow failure [None]
  - Anaemia [None]
  - Pyrexia [None]
  - Sepsis [None]
  - Malaise [None]
  - Gastrointestinal haemorrhage [None]
  - Vaginal haemorrhage [None]
